FAERS Safety Report 15135168 (Version 1)
Quarter: 2018Q3

REPORT INFORMATION
  Report Type: Spontaneous
  Country: US (occurrence: US)
  Receive Date: 20180712
  Receipt Date: 20180712
  Transmission Date: 20181010
  Serious: No
  Sender: FDA-Public Use
  Company Number: US-ABBVIE-18P-163-2386180-00

PATIENT
  Age: 83 Year

DRUGS (1)
  1. VENCLEXTA [Suspect]
     Active Substance: VENETOCLAX
     Indication: PLASMA CELL MYELOMA
     Dosage: VENCLEXTA ON HIS FOURTH WEEK
     Route: 048
     Dates: start: 201805

REACTIONS (3)
  - Cystitis [Recovering/Resolving]
  - Blood urine present [Recovering/Resolving]
  - Haemorrhage urinary tract [Recovering/Resolving]

NARRATIVE: CASE EVENT DATE: 20180606
